FAERS Safety Report 4283626-8 (Version None)
Quarter: 2004Q1

REPORT INFORMATION
  Report Type: 
  Country: None (occurrence: None)
  Receive Date: 20040129
  Receipt Date: 20040129
  Transmission Date: 20041129
  Serious: Yes (Hospitalization)
  Sender: FDA-Public Use
  Company Number: None

PATIENT
  Age: 76 Year
  Sex: Female
  Weight: 46 kg

DRUGS (11)
  1. CHLORAMBUCIL [Suspect]
     Indication: LEUKAEMIA
     Dosage: 4 MG PO QD
     Route: 048
  2. AZOPT [Concomitant]
  3. ALPHAGAN [Concomitant]
  4. TIMOLOL MALEATE [Concomitant]
  5. PREDNISONE [Concomitant]
  6. CALCIUM [Concomitant]
  7. PREMARIN [Concomitant]
  8. TYLENOL (CAPLET) [Concomitant]
  9. ZANTAC [Concomitant]
  10. PSORCON [Concomitant]
  11. OXISTAT [Concomitant]

REACTIONS (5)
  - BODY TEMPERATURE INCREASED [None]
  - DIARRHOEA [None]
  - FATIGUE [None]
  - NIGHT SWEATS [None]
  - TACHYCARDIA [None]
